FAERS Safety Report 5533252-5 (Version None)
Quarter: 2007Q4

REPORT INFORMATION
  Report Type: 
  Country: None (occurrence: None)
  Receive Date: 20071204
  Receipt Date: 20071128
  Transmission Date: 20080405
  Serious: Yes (Other)
  Sender: FDA-Public Use
  Company Number: B0485310A

PATIENT
  Age: 67 Year
  Sex: Female
  Weight: 69 kg

DRUGS (7)
  1. ARIXTRA [Suspect]
     Indication: THROMBOSIS PROPHYLAXIS
     Dosage: 1.5MG PER DAY
     Route: 058
     Dates: start: 20070823, end: 20070827
  2. MINOMYCIN [Concomitant]
     Dosage: 200MG PER DAY
     Route: 048
     Dates: start: 20070825, end: 20070828
  3. CEFOTIAM HYDROCHLORIDE [Concomitant]
     Indication: INFECTION PROPHYLAXIS
     Dosage: 2G PER DAY
     Route: 042
     Dates: start: 20070821, end: 20070824
  4. AMLODIN [Concomitant]
     Indication: HYPERTENSION
     Dosage: 2.5MG PER DAY
     Route: 048
     Dates: end: 20070828
  5. MEVALOTIN [Concomitant]
     Dosage: 10MG PER DAY
     Route: 048
     Dates: end: 20070828
  6. FERROMIA [Concomitant]
     Route: 048
     Dates: end: 20070828
  7. UNKNOWN DRUG [Concomitant]
     Dosage: 2AMP PER DAY

REACTIONS (3)
  - ALANINE AMINOTRANSFERASE INCREASED [None]
  - ASPARTATE AMINOTRANSFERASE INCREASED [None]
  - HEPATIC FUNCTION ABNORMAL [None]
